FAERS Safety Report 5323425-9 (Version None)
Quarter: 2007Q2

REPORT INFORMATION
  Report Type: 
  Country: None (occurrence: None)
  Receive Date: 20070514
  Receipt Date: 20070504
  Transmission Date: 20071010
  Serious: Yes (Other)
  Sender: FDA-Public Use
  Company Number: PHEH2007US06890

PATIENT
  Age: 54 Year
  Sex: Female

DRUGS (3)
  1. ZELNORM [Suspect]
     Indication: DIARRHOEA
     Dosage: 6 MG, QD
     Route: 048
     Dates: start: 20050801
  2. ZELNORM [Suspect]
     Dosage: 6 MG, BID
     Route: 048
     Dates: end: 20060701
  3. NEXIUM [Concomitant]
     Route: 048

REACTIONS (6)
  - ABDOMINAL PAIN [None]
  - CHEST PAIN [None]
  - DIZZINESS [None]
  - PAIN IN JAW [None]
  - SYNCOPE VASOVAGAL [None]
  - WEIGHT DECREASED [None]
